FAERS Safety Report 7486694-5 (Version None)
Quarter: 2011Q2

REPORT INFORMATION
  Report Type: 
  Country: None (occurrence: None)
  Receive Date: 20110517
  Receipt Date: 20100830
  Transmission Date: 20111010
  Serious: No
  Sender: FDA-Public Use
  Company Number: US-NOVEN-ALL1-2010-04568

PATIENT
  Sex: Male
  Weight: 49.887 kg

DRUGS (3)
  1. UNSPECIFIED INHALER [Concomitant]
     Dosage: UNK, 1X/DAY:QD
     Route: 055
     Dates: start: 20000101
  2. ALBUTEROL [Concomitant]
     Dosage: UNK, UNKNOWN
     Route: 065
  3. DAYTRANA [Suspect]
     Dosage: 15 MG, 1X/DAY:QD
     Route: 062
     Dates: start: 20080101

REACTIONS (3)
  - MALAISE [None]
  - PRODUCT QUALITY ISSUE [None]
  - WRONG TECHNIQUE IN DRUG USAGE PROCESS [None]
